FAERS Safety Report 19653359 (Version 1)
Quarter: 2021Q3

REPORT INFORMATION
  Report Type: Spontaneous
  Country: FR (occurrence: FR)
  Receive Date: 20210804
  Receipt Date: 20210804
  Transmission Date: 20211014
  Serious: Yes (Hospitalization, Other)
  Sender: FDA-Public Use
  Company Number: FR-BAUSCH-BL-2021-025950

PATIENT
  Age: 92 Year
  Sex: Female
  Weight: 72.2 kg

DRUGS (11)
  1. AMLODIPINE [Suspect]
     Active Substance: AMLODIPINE BESYLATE
     Indication: HYPERTENSION
     Dosage: IN THE LONG TERM
     Route: 048
  2. PERINDOPRIL ARROW [Suspect]
     Active Substance: PERINDOPRIL
     Indication: HYPERTENSION
     Dosage: IN THE LONG TERM
     Route: 048
  3. DAFALGAN [Concomitant]
     Active Substance: ACETAMINOPHEN
     Indication: PAIN
     Dosage: IN THE LONG TERM
     Route: 048
  4. FUROSEMIDE ARROW [Suspect]
     Active Substance: FUROSEMIDE
     Indication: HYPERTENSION
     Dosage: BREAKABLE TABLET
     Route: 048
     Dates: start: 20210320
  5. LORAZEPAM. [Suspect]
     Active Substance: LORAZEPAM
     Indication: ANXIETY
     Dosage: IN THE LONG TERM
     Route: 048
  6. PRAVASTATINE ARROW GENERIQUES [Suspect]
     Active Substance: PRAVASTATIN SODIUM
     Indication: CAROTID ARTERIOSCLEROSIS
     Dosage: SCORED TABLET, IN THE LONG TERM
     Route: 048
  7. CLOPIDOGREL [Suspect]
     Active Substance: CLOPIDOGREL BISULFATE
     Indication: CAROTID ARTERIOSCLEROSIS
     Dosage: IN THE LONG TERM
     Route: 048
  8. L THYROXIN HENNING [Suspect]
     Active Substance: LEVOTHYROXINE SODIUM
     Indication: THYROID DISORDER
     Dosage: IN THE LONG TERM
     Route: 048
  9. L THYROXIN HENNING [Suspect]
     Active Substance: LEVOTHYROXINE SODIUM
     Dosage: IN THE LONG TERM
     Route: 048
  10. DIFFU K [Concomitant]
     Active Substance: POTASSIUM CHLORIDE
     Indication: HYPOKALAEMIA
     Route: 048
     Dates: start: 20210320
  11. AMOXICILLINE [Concomitant]
     Active Substance: AMOXICILLIN
     Indication: PRODUCT USED FOR UNKNOWN INDICATION
     Route: 048
     Dates: start: 20201002, end: 20201009

REACTIONS (1)
  - Haemolytic anaemia [Not Recovered/Not Resolved]

NARRATIVE: CASE EVENT DATE: 20210421
